FAERS Safety Report 24990418 (Version 1)
Quarter: 2025Q1

REPORT INFORMATION
  Report Type: Spontaneous
  Country: US (occurrence: None)
  Receive Date: 20250219
  Receipt Date: 20250219
  Transmission Date: 20250409
  Serious: Yes (Hospitalization)
  Sender: FDA-CTU
  Company Number: None

PATIENT
  Age: 69 Year
  Sex: Female
  Weight: 60.3 kg

DRUGS (2)
  1. SKYRIZI [Suspect]
     Active Substance: RISANKIZUMAB-RZAA
     Indication: Crohn^s disease
     Dosage: OTHER FREQUENCY : EVERY 4 WEEKS X3 DOSES?
     Route: 041
     Dates: start: 20250108, end: 20250218
  2. SKYRIZI [Concomitant]
     Active Substance: RISANKIZUMAB-RZAA
     Dates: start: 20250108, end: 20250218

REACTIONS (5)
  - Infusion related reaction [None]
  - Rash [None]
  - Pyrexia [None]
  - Urinary tract infection [None]
  - Anal abscess [None]

NARRATIVE: CASE EVENT DATE: 20250205
